FAERS Safety Report 12829197 (Version 1)
Quarter: 2016Q4

REPORT INFORMATION
  Report Type: Spontaneous
  Country: US (occurrence: US)
  Receive Date: 20161007
  Receipt Date: 20161007
  Transmission Date: 20170207
  Serious: No
  Sender: FDA-Public Use
  Company Number: US-SA-2016SA012086

PATIENT
  Sex: Female

DRUGS (13)
  1. AMPYRA [Concomitant]
     Active Substance: DALFAMPRIDINE
  2. FISH OIL [Concomitant]
     Active Substance: FISH OIL
  3. ALENDRONATE SODIUM. [Concomitant]
     Active Substance: ALENDRONATE SODIUM
  4. VITAMIN D3 [Concomitant]
     Active Substance: CHOLECALCIFEROL
  5. OXYBUTYNIN CHLORIDE. [Concomitant]
     Active Substance: OXYBUTYNIN CHLORIDE
  6. ATORVASTATIN CALCIUM. [Concomitant]
     Active Substance: ATORVASTATIN CALCIUM
  7. AUBAGIO [Suspect]
     Active Substance: TERIFLUNOMIDE
     Indication: MULTIPLE SCLEROSIS
     Route: 048
  8. AMITIZA [Concomitant]
     Active Substance: LUBIPROSTONE
  9. ASPIRIN. [Concomitant]
     Active Substance: ASPIRIN
     Dosage: 81 LOW DOSE
  10. COPAXONE [Concomitant]
     Active Substance: GLATIRAMER ACETATE
  11. CALCIUM [Concomitant]
     Active Substance: CALCIUM
  12. FLAXSEED [Concomitant]
     Active Substance: FLAX SEED
  13. OCUVITE [Concomitant]
     Active Substance: VITAMINS

REACTIONS (3)
  - Activities of daily living impaired [Unknown]
  - Peroneal nerve palsy [Unknown]
  - Fatigue [Unknown]
